FAERS Safety Report 5089522-0 (Version None)
Quarter: 2006Q3

REPORT INFORMATION
  Report Type: 
  Country: None (occurrence: None)
  Receive Date: 20060822
  Receipt Date: 20060810
  Transmission Date: 20061208
  Serious: Yes (Other)
  Sender: FDA-Public Use
  Company Number: 2006085251

PATIENT
  Age: 76 Year
  Sex: Female

DRUGS (3)
  1. CELEBREX [Suspect]
     Indication: SCIATICA
     Dosage: 200 MG (100 MG, 2 IN 1 D)
     Dates: start: 20050101, end: 20060806
  2. TOPROL-XL [Concomitant]
  3. VITAMINS (VITAMINS) [Concomitant]

REACTIONS (5)
  - KNEE ARTHROPLASTY [None]
  - PAIN [None]
  - SLEEP DISORDER [None]
  - URTICARIA [None]
  - WEIGHT DECREASED [None]
